FAERS Safety Report 14022187 (Version 1)
Quarter: 2017Q3

REPORT INFORMATION
  Report Type: Spontaneous
  Country: US (occurrence: US)
  Receive Date: 20170928
  Receipt Date: 20170928
  Transmission Date: 20171128
  Serious: Yes (Other)
  Sender: FDA-Public Use
  Company Number: US-BAUSCH-BL-2017-027943

PATIENT
  Age: 74 Year
  Sex: Male

DRUGS (8)
  1. FLUOROURACIL. [Suspect]
     Active Substance: FLUOROURACIL
     Route: 042
     Dates: start: 19910814, end: 19910918
  2. LEVAMISOLE HCL [Suspect]
     Active Substance: LEVAMISOLE HYDROCHLORIDE
     Indication: ADENOCARCINOMA OF COLON
     Route: 048
     Dates: start: 19910710, end: 19910712
  3. FLUOROURACIL. [Suspect]
     Active Substance: FLUOROURACIL
     Indication: ADENOCARCINOMA OF COLON
     Route: 042
     Dates: start: 19910710, end: 19910714
  4. LEVAMISOLE HCL [Suspect]
     Active Substance: LEVAMISOLE HYDROCHLORIDE
     Route: 048
     Dates: start: 19910814, end: 19910816
  5. LEVAMISOLE HCL [Suspect]
     Active Substance: LEVAMISOLE HYDROCHLORIDE
     Route: 048
     Dates: start: 19910828, end: 19910830
  6. ALLOPURINOL. [Concomitant]
     Active Substance: ALLOPURINOL
     Indication: GOUT
  7. LEVAMISOLE HCL [Suspect]
     Active Substance: LEVAMISOLE HYDROCHLORIDE
     Route: 048
     Dates: start: 19910724, end: 19910813
  8. LEVAMISOLE HCL [Suspect]
     Active Substance: LEVAMISOLE HYDROCHLORIDE
     Route: 048
     Dates: start: 19910911, end: 19910913

REACTIONS (1)
  - Leukoencephalopathy [Recovering/Resolving]

NARRATIVE: CASE EVENT DATE: 199109
